FAERS Safety Report 15558381 (Version 1)
Quarter: 2018Q4

REPORT INFORMATION
  Report Type: Other
  Country: JP (occurrence: JP)
  Receive Date: 20181028
  Receipt Date: 20181028
  Transmission Date: 20190205
  Serious: Yes (Hospitalization)
  Sender: FDA-Public Use
  Company Number: JP-LEADING PHARMA, LLC-2058152

PATIENT
  Age: 51 Year
  Sex: Male

DRUGS (1)
  1. LORAZEPAM. [Suspect]
     Active Substance: LORAZEPAM
     Indication: DEPRESSION

REACTIONS (1)
  - Drug-induced liver injury [Recovered/Resolved]
